FAERS Safety Report 24454005 (Version 2)
Quarter: 2024Q4

REPORT INFORMATION
  Report Type: Spontaneous
  Country: US (occurrence: US)
  Receive Date: 20241017
  Receipt Date: 20241018
  Transmission Date: 20250115
  Serious: No
  Sender: ROCHE
  Company Number: US-ROCHE-3465447

PATIENT
  Age: 9 Year
  Sex: Male

DRUGS (2)
  1. RITUXIMAB [Suspect]
     Active Substance: RITUXIMAB
     Indication: Allogenic stem cell transplantation
     Route: 065
  2. DARATUMUMAB [Concomitant]
     Active Substance: DARATUMUMAB

REACTIONS (2)
  - Treatment failure [Unknown]
  - No adverse event [Unknown]
